FAERS Safety Report 6264129-8 (Version None)
Quarter: 2009Q3

REPORT INFORMATION
  Report Type: 
  Country: None (occurrence: None)
  Receive Date: 20090710
  Receipt Date: 20090630
  Transmission Date: 20100115
  Serious: Yes (Other)
  Sender: FDA-Public Use
  Company Number: JP-PFIZER INC-2009202872

PATIENT
  Age: 82 Year

DRUGS (3)
  1. RIFABUTIN [Suspect]
     Indication: MYCOBACTERIAL INFECTION
     Dosage: UNK
     Route: 048
     Dates: start: 20090317, end: 20090409
  2. CLARITHROMYCIN [Concomitant]
  3. MUCODYNE [Concomitant]

REACTIONS (1)
  - LIVER DISORDER [None]
